APPROVED DRUG PRODUCT: LINEZOLID
Active Ingredient: LINEZOLID
Strength: 600MG
Dosage Form/Route: TABLET;ORAL
Application: A210378 | Product #001
Applicant: MACLEODS PHARMACEUTICALS LTD
Approved: Oct 10, 2024 | RLD: No | RS: No | Type: DISCN